FAERS Safety Report 7592829-6 (Version None)
Quarter: 2011Q3

REPORT INFORMATION
  Report Type: 
  Country: None (occurrence: None)
  Receive Date: 20110706
  Receipt Date: 20110628
  Transmission Date: 20111222
  Serious: Yes (Life-Threatening, Other)
  Sender: FDA-Public Use
  Company Number: JP-PFIZER INC-JP-WYE-H18222810

PATIENT
  Age: 78 Year
  Sex: Female
  Weight: 54 kg

DRUGS (9)
  1. LOXOPROFEN SODIUM [Suspect]
     Indication: POSTOPERATIVE ANALGESIA
     Dosage: 180 MG
     Route: 048
     Dates: start: 20100226, end: 20100412
  2. AZULENE SODIUM SULFONATE/LEVOGLUTAMIDE [Concomitant]
     Indication: GASTRIC DISORDER
     Dosage: 2.01 G/DAY
     Route: 048
     Dates: start: 20100409, end: 20100412
  3. ZOSYN [Suspect]
     Indication: POST PROCEDURAL INFECTION
     Dosage: 4.5 G, 3X/DAY
     Route: 041
     Dates: start: 20100318, end: 20100412
  4. CEFAZOLIN SODIUM [Concomitant]
     Indication: INFECTION PROPHYLAXIS
     Dosage: 2 G/DAY
     Dates: start: 20100225, end: 20100312
  5. CEFAZOLIN SODIUM [Concomitant]
     Indication: POST PROCEDURAL INFECTION
  6. FLURBIPROFEN [Concomitant]
     Indication: ANTIPYRESIS
  7. FLURBIPROFEN [Concomitant]
     Indication: POSTOPERATIVE ANALGESIA
     Dosage: 50 MG/DAY
     Route: 041
     Dates: start: 20100318, end: 20100407
  8. ACETAMINOPHEN [Concomitant]
     Indication: ANTIPYRESIS
     Dosage: 200 MG/DAY
     Route: 048
     Dates: start: 20100407, end: 20100409
  9. VANCOMYCIN HYDROCHLORIDE [Concomitant]
     Indication: POST PROCEDURAL INFECTION
     Dosage: 1.5 G/DAY
     Route: 041
     Dates: start: 20100318

REACTIONS (3)
  - TUBULOINTERSTITIAL NEPHRITIS [None]
  - GASTRODUODENAL ULCER [None]
  - ARRHYTHMIA [None]
